FAERS Safety Report 16659513 (Version 1)
Quarter: 2019Q3

REPORT INFORMATION
  Report Type: Not Available
  Country: None (occurrence: CN)
  Receive Date: 20190802
  Receipt Date: 20190802
  Transmission Date: 20191004
  Serious: Yes (Other)
  Sender: FDA-Public Use
  Company Number: CN-JIANGSU HENGRUI MEDICINE CO., LTD.-2072668

PATIENT
  Age: 40 Year
  Sex: Female
  Weight: 47 kg

DRUGS (1)
  1. OXALIPLATIN INJECTION USP, 5 MG/ML, PACKAGED IN 50 MG/10 ML AND 100 MG [Suspect]
     Active Substance: OXALIPLATIN
     Indication: RECTAL CANCER
     Route: 041
     Dates: start: 20190718, end: 20190718

REACTIONS (4)
  - Pharyngeal oedema [Recovering/Resolving]
  - Dysphonia [Recovering/Resolving]
  - Abdominal pain [Recovering/Resolving]
  - Dysarthria [Recovering/Resolving]

NARRATIVE: CASE EVENT DATE: 20190718
